FAERS Safety Report 9513488 (Version 1)
Quarter: 2013Q3

REPORT INFORMATION
  Report Type: Spontaneous
  Country: US (occurrence: US)
  Receive Date: 20130910
  Receipt Date: 20130910
  Transmission Date: 20140515
  Serious: No
  Sender: FDA-Public Use
  Company Number: US-TARO-2013P1005224

PATIENT
  Age: 77 Year
  Sex: Male

DRUGS (7)
  1. WARFARIN SODIUM TABLETS USP 6MG [Suspect]
     Dates: end: 20130506
  2. SYNTHROID [Concomitant]
  3. PREDNISONE [Concomitant]
  4. FOLIC ACID [Concomitant]
  5. CALCIUM CARBONATE [Concomitant]
  6. DETROL LA [Concomitant]
  7. VITAMIN D [Concomitant]

REACTIONS (2)
  - International normalised ratio abnormal [Unknown]
  - Product quality issue [Unknown]
